FAERS Safety Report 5227848-8 (Version None)
Quarter: 2007Q1

REPORT INFORMATION
  Report Type: 
  Country: None (occurrence: None)
  Receive Date: 20070202
  Receipt Date: 20070123
  Transmission Date: 20070707
  Serious: Yes (Other)
  Sender: FDA-Public Use
  Company Number: GB-PFIZER INC-2007004972

PATIENT
  Age: 12 Year
  Sex: Male

DRUGS (1)
  1. ETHOSUXIMIDE [Suspect]
     Indication: EPILEPSY

REACTIONS (2)
  - PSEUDOLYMPHOMA [None]
  - PYREXIA [None]
